FAERS Safety Report 6342443-5 (Version None)
Quarter: 2009Q3

REPORT INFORMATION
  Report Type: 
  Country: None (occurrence: None)
  Receive Date: 20090908
  Receipt Date: 20041227
  Transmission Date: 20100115
  Serious: No
  Sender: FDA-Public Use
  Company Number: JP-ROCHE-390712

PATIENT
  Age: 28 Year
  Sex: Female

DRUGS (3)
  1. TAMIFLU [Suspect]
     Dosage: DOSAGE REGIMEN REPORTED AS 150 MG.
     Route: 048
     Dates: start: 20041204, end: 20041206
  2. FLOMOX [Concomitant]
     Route: 048
  3. CALONAL [Concomitant]
     Route: 048

REACTIONS (2)
  - DRUG EXPOSURE DURING PREGNANCY [None]
  - PREGNANCY [None]
